FAERS Safety Report 18856467 (Version 7)
Quarter: 2022Q3

REPORT INFORMATION
  Report Type: Spontaneous
  Country: JP (occurrence: JP)
  Receive Date: 20210207
  Receipt Date: 20220913
  Transmission Date: 20221027
  Serious: Yes (Hospitalization)
  Sender: FDA-Public Use
  Company Number: JP-BRISTOL-MYERS SQUIBB COMPANY-BMS-2020-085790

PATIENT
  Age: 64 Year
  Sex: Male
  Weight: 56 kg

DRUGS (3)
  1. YERVOY [Suspect]
     Active Substance: IPILIMUMAB
     Indication: Metastatic renal cell carcinoma
     Dosage: 58.2 MG
     Route: 041
     Dates: start: 20200925, end: 20200925
  2. YERVOY [Suspect]
     Active Substance: IPILIMUMAB
  3. OPDIVO [Suspect]
     Active Substance: NIVOLUMAB
     Indication: Metastatic renal cell carcinoma
     Dosage: 240 MG
     Route: 042
     Dates: start: 20200925, end: 20200925

REACTIONS (3)
  - Pharyngeal ulceration [Recovering/Resolving]
  - Aphthous ulcer [Recovering/Resolving]
  - Laryngeal ulceration [Recovering/Resolving]

NARRATIVE: CASE EVENT DATE: 20201009
